FAERS Safety Report 5635552-7 (Version None)
Quarter: 2008Q1

REPORT INFORMATION
  Report Type: 
  Country: None (occurrence: None)
  Receive Date: 20080222
  Receipt Date: 20080213
  Transmission Date: 20080703
  Serious: Yes (Death)
  Sender: FDA-Public Use
  Company Number: JP-PFIZER INC-2008015190

PATIENT
  Sex: Male

DRUGS (2)
  1. IRINOTECAN HCL [Suspect]
     Indication: GASTRIC CANCER RECURRENT
     Route: 042
     Dates: start: 20070914, end: 20070921
  2. TAXOL [Suspect]
     Indication: GASTRIC CANCER RECURRENT
     Route: 042
     Dates: start: 20070914, end: 20070921

REACTIONS (6)
  - ACUTE RESPIRATORY FAILURE [None]
  - FEBRILE NEUTROPENIA [None]
  - HEPATIC FUNCTION ABNORMAL [None]
  - RENAL IMPAIRMENT [None]
  - SHOCK [None]
  - THROMBOCYTOPENIA [None]
